FAERS Safety Report 17642557 (Version 1)
Quarter: 2020Q2

REPORT INFORMATION
  Report Type: Report from Study
  Country: LT (occurrence: LT)
  Receive Date: 20200408
  Receipt Date: 20200408
  Transmission Date: 20200713
  Serious: Yes (Hospitalization)
  Sender: FDA-Public Use
  Company Number: LT-ROCHE-2577048

PATIENT
  Age: 57 Year
  Sex: Female

DRUGS (5)
  1. ALLOPURINOL. [Concomitant]
     Active Substance: ALLOPURINOL
     Indication: HYPERURICAEMIA
     Route: 048
  2. DELTACORTRIL [PREDNISOLONE] [Concomitant]
     Route: 048
     Dates: start: 202002
  3. LOBIVON [Concomitant]
     Active Substance: NEBIVOLOL HYDROCHLORIDE
     Indication: HYPERTENSION
     Route: 048
     Dates: start: 2017
  4. LYRICA [Concomitant]
     Active Substance: PREGABALIN
     Indication: TUMOUR PAIN
     Route: 048
     Dates: start: 202002
  5. ATEZOLIZUMAB. [Suspect]
     Active Substance: ATEZOLIZUMAB
     Indication: NON-SMALL CELL LUNG CANCER METASTATIC
     Route: 042
     Dates: start: 20200324, end: 20200324

REACTIONS (1)
  - Fall [Unknown]

NARRATIVE: CASE EVENT DATE: 20200325
